FAERS Safety Report 6093465-3 (Version None)
Quarter: 2009Q1

REPORT INFORMATION
  Report Type: 
  Country: None (occurrence: None)
  Receive Date: 20090223
  Receipt Date: 20090223
  Transmission Date: 20090719
  Serious: Yes (Death)
  Sender: FDA-Public Use
  Company Number: None

PATIENT
  Sex: Male

DRUGS (1)
  1. CHANTIX [Suspect]
     Indication: SMOKING CESSATION THERAPY
     Dosage: 0.5MG DAY X3 DAYS, 0.5MG BID 4 PO
     Route: 048
     Dates: start: 20090205, end: 20090215

REACTIONS (1)
  - COMPLETED SUICIDE [None]
